FAERS Safety Report 6812091-9 (Version None)
Quarter: 2010Q2

REPORT INFORMATION
  Report Type: 
  Country: None (occurrence: None)
  Receive Date: 20100628
  Receipt Date: 20100617
  Transmission Date: 20101027
  Serious: Yes (Other)
  Sender: FDA-Public Use
  Company Number: 7008247

PATIENT
  Sex: Female

DRUGS (2)
  1. LEVOTHYROXINE SODIUM [Suspect]
     Indication: THYROID THERAPY
     Dosage: 225 MCG
  2. RADIO IODINE THERAPY (SODIUM IODIDE) (131 I)) [Concomitant]

REACTIONS (14)
  - AMNIOTIC FLUID VOLUME DECREASED [None]
  - CAESAREAN SECTION [None]
  - CARDIAC FAILURE [None]
  - CARDIOMEGALY [None]
  - CONGENITAL HYPERTHYROIDISM [None]
  - CONGENITAL TRICUSPID VALVE INCOMPETENCE [None]
  - CRYING [None]
  - DRUG EXPOSURE DURING PREGNANCY [None]
  - HYPERTHYROIDISM [None]
  - IRRITABILITY [None]
  - PREGNANCY [None]
  - PREMATURE BABY [None]
  - TACHYCARDIA FOETAL [None]
  - WEIGHT DECREASE NEONATAL [None]
